FAERS Safety Report 5174060-7 (Version None)
Quarter: 2006Q4

REPORT INFORMATION
  Report Type: 
  Country: None (occurrence: None)
  Receive Date: 20061214
  Receipt Date: 20060421
  Transmission Date: 20070319
  Serious: No
  Sender: FDA-Public Use
  Company Number: US-AMGEN-US177207

PATIENT
  Sex: Female
  Weight: 72.2 kg

DRUGS (4)
  1. ENBREL [Suspect]
     Indication: RHEUMATOID ARTHRITIS
     Route: 065
     Dates: start: 20041104
  2. PREDNISONE TAB [Concomitant]
     Route: 065
  3. DIOVAN [Concomitant]
     Route: 065
  4. ZOCOR [Concomitant]
     Route: 065

REACTIONS (2)
  - INJECTION SITE HAEMORRHAGE [None]
  - INJECTION SITE PAIN [None]
